FAERS Safety Report 17973093 (Version 1)
Quarter: 2020Q3

REPORT INFORMATION
  Report Type: Spontaneous
  Country: US (occurrence: US)
  Receive Date: 20200701
  Receipt Date: 20200701
  Transmission Date: 20201103
  Serious: No
  Sender: FDA-Public Use
  Company Number: None

PATIENT
  Age: 23 Year
  Sex: Female
  Weight: 54 kg

DRUGS (4)
  1. CRANBERRY SUPPLEMENTS [Concomitant]
  2. RITUAL VITAMINS [Concomitant]
  3. METHYLPHENIDATE 18MG ER OSM TABLETS [Suspect]
     Active Substance: METHYLPHENIDATE HYDROCHLORIDE
     Indication: ATTENTION DEFICIT HYPERACTIVITY DISORDER
     Dosage: ?          QUANTITY:30 TABLET(S);?
     Route: 048
     Dates: start: 20200512, end: 20200604
  4. BUPROPION. [Concomitant]
     Active Substance: BUPROPION

REACTIONS (5)
  - Product substitution issue [None]
  - Anger [None]
  - Therapeutic product effect decreased [None]
  - Irritability [None]
  - Product measured potency issue [None]

NARRATIVE: CASE EVENT DATE: 20200512
